FAERS Safety Report 23533642 (Version 2)
Quarter: 2024Q1

REPORT INFORMATION
  Report Type: Spontaneous
  Country: JP (occurrence: JP)
  Receive Date: 20240216
  Receipt Date: 20240311
  Transmission Date: 20240410
  Serious: Yes (Death, Hospitalization, Other)
  Sender: FDA-Public Use
  Company Number: JP-OTSUKA-2024_003886

PATIENT
  Age: 78 Year
  Sex: Female

DRUGS (19)
  1. SAMSCA [Suspect]
     Active Substance: TOLVAPTAN
     Indication: Cardiac failure
     Dosage: 0.5 TABLET/TIME (0.5 TABLET/DAY), ONCE DAILY AFTER DINNER
     Route: 048
     Dates: start: 20240112, end: 202401
  2. ENTRESTO [Suspect]
     Active Substance: SACUBITRIL\VALSARTAN
     Indication: Hypertension
     Dosage: 200 MG/DAY
     Route: 048
     Dates: start: 20230801, end: 20230920
  3. ENTRESTO [Suspect]
     Active Substance: SACUBITRIL\VALSARTAN
     Indication: Cardiac failure
     Dosage: UNK
     Route: 048
     Dates: start: 202311
  4. ENTRESTO [Suspect]
     Active Substance: SACUBITRIL\VALSARTAN
     Dosage: UNK
     Route: 048
     Dates: end: 202311
  5. SIMPONI [Concomitant]
     Active Substance: GOLIMUMAB
     Indication: Rheumatoid arthritis
     Dosage: UNK
     Route: 065
  6. AZULFIDINE EN-TABS [Concomitant]
     Active Substance: SULFASALAZINE
     Indication: Product used for unknown indication
     Dosage: 1 TABLET/TIME (2 TABLETS/DAY), TWICE DAILY, AFTER BREAKFAST/DINNER
     Route: 048
     Dates: start: 20230929
  7. VONOPRAZAN FUMARATE [Concomitant]
     Active Substance: VONOPRAZAN FUMARATE
     Indication: Product used for unknown indication
     Dosage: 1 TABLET/TIME (1 TABLET/DAY), ONCE DAILY, AFTER BREAKFAST
     Route: 048
     Dates: start: 20230929
  8. VONOPRAZAN FUMARATE [Concomitant]
     Active Substance: VONOPRAZAN FUMARATE
     Dosage: 1 TABLET/TIME (1 TABLET/DAY), ONCE DAILY, AFTER BREAKFAST
     Route: 048
     Dates: start: 20240111
  9. AZELNIDIPINE [Concomitant]
     Active Substance: AZELNIDIPINE
     Indication: Product used for unknown indication
     Dosage: 1 TABLET/TIME (1 TABLET/DAY), ONCE DAILY, AFTER BREAKFAST
     Route: 048
     Dates: start: 20230929
  10. PREDNISOLONE [Concomitant]
     Active Substance: PREDNISOLONE
     Indication: Product used for unknown indication
     Dosage: 1 TABLET/TIME (1 TABLET/DAY), ONCE DAILY, AFTER BREAKFAST
     Route: 048
     Dates: start: 20230929
  11. PREDNISOLONE [Concomitant]
     Active Substance: PREDNISOLONE
     Dosage: 3 TABLETS/TIME (3 TABLETS/DAY), ONCE DAILY, AFTER BREAKFAST
     Route: 048
     Dates: start: 20240111
  12. CARVEDILOL [Concomitant]
     Active Substance: CARVEDILOL
     Indication: Product used for unknown indication
     Dosage: 2.5 MG
     Route: 065
  13. CARVEDILOL [Concomitant]
     Active Substance: CARVEDILOL
     Dosage: 1 TABLET/TIME (1 TABLET/DAY), ONCE DAILY, BEFORE SLEEP
     Route: 048
     Dates: start: 20240111
  14. DAPRODUSTAT [Concomitant]
     Active Substance: DAPRODUSTAT
     Indication: Product used for unknown indication
     Dosage: 3 TABLETS/TIME (3 TABLETS/DAY), ONCE DAILY, AFTER BREAKFAST
     Route: 048
     Dates: start: 20240111
  15. MIYA-BM [Concomitant]
     Active Substance: CLOSTRIDIUM BUTYRICUM SPORES STRAIN M-55
     Indication: Product used for unknown indication
     Dosage: 1 TABLET/TIME (3 TABLETS/DAY), THREE TIMES DAILY, AFTER BREAKFAST/LUNCH/DINNER
     Route: 048
     Dates: start: 20240111
  16. ATOVAQUONE [Concomitant]
     Active Substance: ATOVAQUONE
     Indication: Product used for unknown indication
     Dosage: 2 PACKETS/TIME (2 PACKETS/DAY), ONCE DAILY, AFTER BREAKFAST
     Route: 048
     Dates: start: 20240111
  17. AZOSEMIDE [Concomitant]
     Active Substance: AZOSEMIDE
     Indication: Product used for unknown indication
     Dosage: 2 TABLETS/TIME (2 TABLETS/DAY), ONCE DAILY, AFTER BREAKFAST
     Route: 048
     Dates: start: 20240111
  18. DAYVIGO [Concomitant]
     Active Substance: LEMBOREXANT
     Indication: Product used for unknown indication
     Dosage: 1 TABLET/TIME (1 TABLET/DAY)
     Route: 048
  19. TRAZODONE HYDROCHLORIDE [Concomitant]
     Active Substance: TRAZODONE HYDROCHLORIDE
     Indication: Product used for unknown indication
     Dosage: 1 TABLET/TIME (1 TABLET/DAY), ONCE DAILY, BEFORE SLEEP
     Route: 048
     Dates: start: 20240112

REACTIONS (2)
  - Drug eruption [Fatal]
  - Death [Fatal]

NARRATIVE: CASE EVENT DATE: 20230911
